FAERS Safety Report 22238037 (Version 1)
Quarter: 2023Q2

REPORT INFORMATION
  Report Type: Other
  Country: JP (occurrence: None)
  Receive Date: 20230421
  Receipt Date: 20230421
  Transmission Date: 20230721
  Serious: Yes (Hospitalization)
  Sender: FDA-Public Use
  Company Number: JP-Saptalis Pharmaceuticals,LLC-000354

PATIENT
  Age: 40 Year
  Sex: Male
  Weight: 35 kg

DRUGS (1)
  1. METFORMIN [Suspect]
     Active Substance: METFORMIN HYDROCHLORIDE
     Indication: Diabetes mellitus
     Dosage: 750 MG/DAY

REACTIONS (1)
  - MELAS syndrome [Recovering/Resolving]
